FAERS Safety Report 20329009 (Version 1)
Quarter: 2022Q1

REPORT INFORMATION
  Report Type: Other
  Country: IT (occurrence: None)
  Receive Date: 20220112
  Receipt Date: 20220112
  Transmission Date: 20220424
  Serious: Yes (Other)
  Sender: FDA-Public Use
  Company Number: IT-Neopharma Inc-000691

PATIENT
  Age: 5 Year
  Sex: Female

DRUGS (1)
  1. AMOXICILLIN\CLAVULANIC ACID [Suspect]
     Active Substance: AMOXICILLIN\CLAVULANIC ACID
     Indication: Beta haemolytic streptococcal infection
     Dosage: 10-DAY COURSE OF AMX/CLV
     Route: 048

REACTIONS (5)
  - Angioedema [Unknown]
  - Urticaria [Unknown]
  - Cutaneous vasculitis [Recovered/Resolved]
  - Rash maculo-papular [Unknown]
  - Type IV hypersensitivity reaction [Unknown]
